FAERS Safety Report 5289505-1 (Version None)
Quarter: 2007Q2

REPORT INFORMATION
  Report Type: 
  Country: None (occurrence: None)
  Receive Date: 20070402
  Receipt Date: 20070321
  Transmission Date: 20071010
  Serious: Yes (Death, Other)
  Sender: FDA-Public Use
  Company Number: 163-21880-06101329

PATIENT
  Age: 71 Year
  Sex: Male

DRUGS (4)
  1. REVLIMID [Suspect]
     Indication: MYELOFIBROSIS
     Dosage: SEE IMAGE
     Route: 048
     Dates: start: 20060316, end: 20060401
  2. REVLIMID [Suspect]
     Indication: MYELOFIBROSIS
     Dosage: SEE IMAGE
     Route: 048
     Dates: start: 20060411, end: 20060401
  3. REVLIMID [Suspect]
     Indication: MYELOFIBROSIS
     Dosage: SEE IMAGE
     Route: 048
     Dates: start: 20060516, end: 20061012
  4. CHEMOTHERAPY (CHEMOTHERAPEUTICS NOS) [Suspect]
     Indication: MYELOFIBROSIS
     Dates: start: 20061001

REACTIONS (3)
  - DISEASE PROGRESSION [None]
  - NO THERAPEUTIC RESPONSE [None]
  - PANCYTOPENIA [None]
